FAERS Safety Report 15109169 (Version 1)
Quarter: 2018Q3

REPORT INFORMATION
  Report Type: Report from Study
  Country: US (occurrence: US)
  Receive Date: 20180705
  Receipt Date: 20180705
  Transmission Date: 20181010
  Serious: Yes (Other)
  Sender: FDA-Public Use
  Company Number: US-ROCHE-2042264

PATIENT
  Age: 78 Year
  Sex: Male
  Weight: 84.44 kg

DRUGS (9)
  1. ACTEMRA [Suspect]
     Active Substance: TOCILIZUMAB
     Indication: TEMPORAL ARTERITIS
     Route: 058
  2. XARELTO [Suspect]
     Active Substance: RIVAROXABAN
     Indication: THROMBOSIS
     Dosage: ONGOING NO; TAPER DOSE
     Route: 048
     Dates: start: 20170926, end: 2017
  3. ASPIRIN. [Concomitant]
     Active Substance: ASPIRIN
     Indication: THROMBOSIS
     Route: 048
     Dates: start: 20180618
  4. PREDNISONE. [Suspect]
     Active Substance: PREDNISONE
     Dosage: ONGOING NO; TAPERED DOWN A YEAR AND A HALF AGO
     Route: 048
     Dates: start: 2018, end: 2018
  5. XARELTO [Suspect]
     Active Substance: RIVAROXABAN
     Dosage: ONGOING NO; TAPER DOSE
     Route: 048
     Dates: start: 2017, end: 20180617
  6. ACTEMRA [Suspect]
     Active Substance: TOCILIZUMAB
     Route: 058
     Dates: start: 201709, end: 20170926
  7. ACTEMRA [Suspect]
     Active Substance: TOCILIZUMAB
     Route: 058
     Dates: start: 20171030
  8. PREDNISONE. [Suspect]
     Active Substance: PREDNISONE
     Dosage: ONGOING NO; TAPERED DOWN A YEAR AND A HALF AGO
     Route: 048
     Dates: start: 2018, end: 2018
  9. PREDNISONE. [Suspect]
     Active Substance: PREDNISONE
     Indication: TEMPORAL ARTERITIS
     Route: 048
     Dates: start: 201611

REACTIONS (18)
  - Haemorrhage [Unknown]
  - Peripheral swelling [Unknown]
  - Acne [Unknown]
  - Thermal burn [Unknown]
  - Scab [Recovered/Resolved]
  - Temporal arteritis [Recovering/Resolving]
  - Vision blurred [Unknown]
  - Peripheral swelling [Recovered/Resolved]
  - Pruritus [Recovered/Resolved]
  - Thrombosis [Recovered/Resolved]
  - Screaming [Recovered/Resolved]
  - Somnolence [Recovering/Resolving]
  - Malaise [Unknown]
  - Burning sensation [Unknown]
  - Weight decreased [Unknown]
  - Platelet count decreased [Recovered/Resolved]
  - Cataract [Not Recovered/Not Resolved]
  - Rash [Recovered/Resolved]

NARRATIVE: CASE EVENT DATE: 2017
